FAERS Safety Report 7583759-4 (Version None)
Quarter: 2011Q2

REPORT INFORMATION
  Report Type: 
  Country: None (occurrence: None)
  Receive Date: 20110630
  Receipt Date: 20110620
  Transmission Date: 20111010
  Serious: Yes (Hospitalization)
  Sender: FDA-Public Use
  Company Number: CA-AMGEN-CANSP2011022898

PATIENT
  Age: 72 Year
  Sex: Female

DRUGS (3)
  1. PROLIA [Suspect]
     Indication: OSTEOPOROSIS POSTMENOPAUSAL
     Dosage: UNK UNK, ONE TIME DOSE
     Route: 058
     Dates: start: 20110201
  2. ANTIHYPERTENSIVES [Concomitant]
  3. PROTON PUMP INHIBITORS [Concomitant]

REACTIONS (3)
  - VULVAL ABSCESS [None]
  - CELLULITIS [None]
  - NODULE [None]
